FAERS Safety Report 12509220 (Version 1)
Quarter: 2016Q2

REPORT INFORMATION
  Report Type: Report from Study
  Country: CN (occurrence: CN)
  Receive Date: 20160629
  Receipt Date: 20160629
  Transmission Date: 20160815
  Serious: Yes (Life-Threatening, Hospitalization, Other)
  Sender: FDA-Public Use
  Company Number: CN-BAXTER-2016BAX033560

PATIENT
  Age: 25 Year
  Sex: Female

DRUGS (1)
  1. DIANEAL [Suspect]
     Active Substance: CALCIUM CHLORIDE\DEXTROSE\MAGNESIUM CHLORIDE\SODIUM CHLORIDE\SODIUM LACTATE
     Indication: END STAGE RENAL DISEASE
     Route: 033
     Dates: start: 20140529, end: 2015

REACTIONS (4)
  - Peritonitis [Recovered/Resolved]
  - Peritoneal dialysis complication [Unknown]
  - Delirium [Unknown]
  - Dysstasia [Unknown]

NARRATIVE: CASE EVENT DATE: 201508
